FAERS Safety Report 11756164 (Version 3)
Quarter: 2015Q4

REPORT INFORMATION
  Report Type: Spontaneous
  Country: DE (occurrence: DE)
  Receive Date: 20151119
  Receipt Date: 20151217
  Transmission Date: 20160304
  Serious: Yes (Hospitalization, Other)
  Sender: FDA-Public Use
  Company Number: DE-GILEAD-2015-0181358

PATIENT
  Age: 70 Year
  Sex: Male

DRUGS (8)
  1. CIPROBETA [Concomitant]
     Active Substance: CIPROFLOXACIN HYDROCHLORIDE
     Indication: PYREXIA
     Dosage: UNK
     Dates: start: 20151028
  2. CHLORAMBUCIL [Concomitant]
     Active Substance: CHLORAMBUCIL
     Dosage: 900 MG, UNK
     Dates: start: 20151027
  3. ZYDELIG [Suspect]
     Active Substance: IDELALISIB
     Indication: CHRONIC LYMPHOCYTIC LEUKAEMIA
     Dosage: UNK
     Route: 048
     Dates: start: 201410, end: 201507
  4. RITUXIMAB [Concomitant]
     Active Substance: RITUXIMAB
     Indication: CHRONIC LYMPHOCYTIC LEUKAEMIA
     Dosage: UNK
     Dates: start: 201410, end: 201507
  5. CHLORAMBUCIL [Concomitant]
     Active Substance: CHLORAMBUCIL
     Dosage: 50 MG, UNK
     Dates: end: 20151026
  6. PARACETAMOL [Concomitant]
     Active Substance: ACETAMINOPHEN
     Indication: PYREXIA
     Dosage: UNK
     Dates: start: 20151027
  7. IMMUNOGLOBULIN                     /00025201/ [Concomitant]
     Active Substance: HUMAN IMMUNOGLOBULIN G
  8. OBINUTUZUMAB [Suspect]
     Active Substance: OBINUTUZUMAB
     Indication: PRODUCT USED FOR UNKNOWN INDICATION
     Dosage: 900 MG, SECOND DOSE
     Dates: start: 20151027

REACTIONS (5)
  - Tumour lysis syndrome [Recovering/Resolving]
  - Leukocytosis [Unknown]
  - Thrombocytopenia [Unknown]
  - Diarrhoea [Recovering/Resolving]
  - Colitis [Unknown]

NARRATIVE: CASE EVENT DATE: 201507
